FAERS Safety Report 9954014 (Version 1)
Quarter: 2014Q1

REPORT INFORMATION
  Report Type: Spontaneous
  Country: US (occurrence: US)
  Receive Date: 20140304
  Receipt Date: 20140304
  Transmission Date: 20141002
  Serious: No
  Sender: FDA-Public Use
  Company Number: US-TARO-2013P1020390

PATIENT
  Age: 61 Year
  Sex: Female

DRUGS (1)
  1. LAMOTRIGINE TABLETS 200 MG [Suspect]
     Route: 048

REACTIONS (1)
  - Rash [Recovered/Resolved]
